FAERS Safety Report 6094834-8 (Version None)
Quarter: 2009Q1

REPORT INFORMATION
  Report Type: 
  Country: None (occurrence: None)
  Receive Date: 20090225
  Receipt Date: 20080402
  Transmission Date: 20090719
  Serious: Yes (Other)
  Sender: FDA-Public Use
  Company Number: DSA_31755_2008

PATIENT
  Sex: Male

DRUGS (2)
  1. VASOTEC [Suspect]
     Indication: HYPERTENSION
     Dosage: (DF ORAL)
     Route: 048
  2. LOPRESSOR [Suspect]
     Indication: DRUG USE FOR UNKNOWN INDICATION
     Dosage: (50 MG BID), (1/2 50 MG TABLET, TWICE DAILY)

REACTIONS (1)
  - ORTHOSTATIC INTOLERANCE [None]
